FAERS Safety Report 7897711-2 (Version None)
Quarter: 2011Q4

REPORT INFORMATION
  Report Type: 
  Country: None (occurrence: None)
  Receive Date: 20111028
  Receipt Date: 20110502
  Transmission Date: 20120403
  Serious: Yes (Other)
  Sender: FDA-Public Use
  Company Number: PHHY2011US37123

PATIENT
  Age: 44 Year
  Sex: Male

DRUGS (2)
  1. TRILEPTAL [Suspect]
     Dosage: SEE IMAGE
  2. LAMICTAL [Concomitant]

REACTIONS (2)
  - RASH GENERALISED [None]
  - PRURITUS [None]
